FAERS Safety Report 23136999 (Version 7)
Quarter: 2024Q4

REPORT INFORMATION
  Report Type: Report from Study
  Country: US (occurrence: US)
  Receive Date: 20231102
  Receipt Date: 20241226
  Transmission Date: 20250115
  Serious: Yes (Other)
  Sender: NOVARTIS
  Company Number: US-002147023-NVSC2023US234489

PATIENT
  Sex: Male

DRUGS (1)
  1. COSENTYX [Suspect]
     Active Substance: SECUKINUMAB
     Indication: Product used for unknown indication
     Dosage: 150 MG, QMO
     Route: 058

REACTIONS (6)
  - Pneumonia [Unknown]
  - Ear disorder [Unknown]
  - Hypoacusis [Unknown]
  - Product temperature excursion issue [Unknown]
  - Alopecia [Unknown]
  - Ill-defined disorder [Unknown]
